FAERS Safety Report 17171313 (Version 1)
Quarter: 2019Q4

REPORT INFORMATION
  Report Type: Spontaneous
  Country: US (occurrence: US)
  Receive Date: 20191218
  Receipt Date: 20191218
  Transmission Date: 20200122
  Serious: No
  Sender: FDA-Public Use
  Company Number: US-SUPERNUS PHARMACEUTICALS, INC.-2019SUP00026

PATIENT
  Sex: Female

DRUGS (3)
  1. TROKENDI XR [Suspect]
     Active Substance: TOPIRAMATE
     Indication: MIGRAINE
     Dosage: 25 MG
  2. TROKENDI XR [Suspect]
     Active Substance: TOPIRAMATE
     Indication: UNEVALUABLE EVENT
     Dosage: 50 MG
  3. TRAMADOL. [Concomitant]
     Active Substance: TRAMADOL

REACTIONS (3)
  - Nasopharyngitis [Unknown]
  - Sinus headache [Unknown]
  - Therapeutic product effect incomplete [Unknown]
